FAERS Safety Report 4899298-5 (Version None)
Quarter: 2006Q1

REPORT INFORMATION
  Report Type: 
  Country: None (occurrence: None)
  Receive Date: 20060131
  Receipt Date: 20060117
  Transmission Date: 20060701
  Serious: Yes (Death, Other)
  Sender: FDA-Public Use
  Company Number: 2006RR-01509

PATIENT
  Age: 25 Year
  Sex: Male
  Weight: 75 kg

DRUGS (4)
  1. CITALOPRAM (CITALOPRAM) [Suspect]
  2. CODEINE PHOSPHATE (CODEINE PHOSPHATE) [Suspect]
  3. ACETAMINOPHEN [Suspect]
  4. CYCLIZINE(CYCLIZINE) [Suspect]

REACTIONS (4)
  - ALCOHOL USE [None]
  - ASPIRATION [None]
  - DRUG TOXICITY [None]
  - INTENTIONAL OVERDOSE [None]
